FAERS Safety Report 7144899-7 (Version None)
Quarter: 2010Q4

REPORT INFORMATION
  Report Type: 
  Country: None (occurrence: None)
  Receive Date: 20101123
  Receipt Date: 20101112
  Transmission Date: 20110411
  Serious: Yes (Other)
  Sender: FDA-Public Use
  Company Number: 2010EU005941

PATIENT
  Age: 62 Year
  Sex: Female

DRUGS (8)
  1. VESITIRIM (SOLIFENACIN) TABLET, 5MG [Suspect]
     Indication: HYPERTONIC BLADDER
     Dosage: 5 MG, UID/QD, ORAL
     Route: 048
     Dates: start: 20101018, end: 20101031
  2. LEXOTAN (BROMAZEPAM) [Concomitant]
  3. DALMANE [Concomitant]
  4. ATECOR (ATENOLOL) [Concomitant]
  5. ZOCOR [Concomitant]
  6. CARDURA [Concomitant]
  7. ZESTRIL [Concomitant]
  8. CALCICHEW D3 FORTE (CALCIUM CARBONATE, COLECALCIFEROL) [Concomitant]

REACTIONS (4)
  - NASAL OEDEMA [None]
  - PERIORBITAL OEDEMA [None]
  - RHINALGIA [None]
  - SWELLING FACE [None]
